FAERS Safety Report 11199312 (Version 1)
Quarter: 2015Q2

REPORT INFORMATION
  Report Type: Spontaneous
  Country: US (occurrence: None)
  Receive Date: 20150617
  Receipt Date: 20150617
  Transmission Date: 20150821
  Serious: Yes (Death)
  Sender: FDA-Public Use
  Company Number: None

PATIENT
  Age: 82 Year
  Sex: Male

DRUGS (1)
  1. CAPECITABINE 500 MG TEVA PHARMACEUTICALS USA INC [Suspect]
     Active Substance: CAPECITABINE
     Indication: GASTROINTESTINAL CARCINOMA
     Dosage: 3 AM AND 2 PM
     Route: 048
     Dates: start: 20150529, end: 20150615

REACTIONS (2)
  - Gastrointestinal carcinoma [None]
  - Malignant neoplasm progression [None]

NARRATIVE: CASE EVENT DATE: 20150616
